FAERS Safety Report 18099306 (Version 1)
Quarter: 2020Q3

REPORT INFORMATION
  Report Type: Spontaneous
  Country: US (occurrence: US)
  Receive Date: 20200731
  Receipt Date: 20200731
  Transmission Date: 20201103
  Serious: Yes (Hospitalization)
  Sender: FDA-Public Use
  Company Number: None

PATIENT
  Age: 56 Year
  Sex: Female

DRUGS (11)
  1. AMANTADINE. [Concomitant]
     Active Substance: AMANTADINE HYDROCHLORIDE
     Dates: start: 20200529
  2. ATORVASTATIN [Concomitant]
     Active Substance: ATORVASTATIN
     Dates: start: 20200529
  3. REBIF REBIDOSE [Suspect]
     Active Substance: INTERFERON BETA-1A
     Indication: MULTIPLE SCLEROSIS
     Dosage: ?          OTHER FREQUENCY:THREE TIMES A WEEK;?
     Route: 055
     Dates: start: 20190809
  4. LEVOTHYROXIN [Concomitant]
     Active Substance: LEVOTHYROXINE
     Dates: start: 20200529
  5. LOSARTAN. [Concomitant]
     Active Substance: LOSARTAN
     Dates: start: 20200529
  6. BACLOFEN. [Concomitant]
     Active Substance: BACLOFEN
     Dates: start: 20200529
  7. VITAMIN D [Concomitant]
     Active Substance: VITAMIN D NOS
     Dates: start: 20200529
  8. SINGULAIR [Concomitant]
     Active Substance: MONTELUKAST SODIUM
     Dates: start: 20200529
  9. ZYRTEC [Concomitant]
     Active Substance: CETIRIZINE HYDROCHLORIDE
     Dates: start: 20200529
  10. GABAPENTIN. [Concomitant]
     Active Substance: GABAPENTIN
     Dates: start: 20200529
  11. IBUPROFEN. [Concomitant]
     Active Substance: IBUPROFEN
     Dates: start: 20200529

REACTIONS (6)
  - Multiple sclerosis relapse [None]
  - Unresponsive to stimuli [None]
  - Blood glucose decreased [None]
  - Back pain [None]
  - Hypertension [None]
  - Pain in extremity [None]

NARRATIVE: CASE EVENT DATE: 20200716
